FAERS Safety Report 12659957 (Version 3)
Quarter: 2016Q4

REPORT INFORMATION
  Report Type: Spontaneous
  Country: JP (occurrence: JP)
  Receive Date: 20160817
  Receipt Date: 20161004
  Transmission Date: 20170207
  Serious: Yes (Other)
  Sender: FDA-Public Use
  Company Number: JP-AMGEN-JPNSP2016107500

PATIENT
  Age: 92 Year
  Sex: Female
  Weight: 41 kg

DRUGS (7)
  1. PRALIA [Suspect]
     Active Substance: DENOSUMAB
     Indication: OSTEOPOROSIS
     Dosage: 60 MG, Q6MO
     Route: 058
     Dates: start: 20160229, end: 20160229
  2. MAGNESIUM OXIDE. [Concomitant]
     Active Substance: MAGNESIUM OXIDE
     Dosage: 330 MG, BID
     Route: 048
     Dates: start: 20160328
  3. MICAMLO [Concomitant]
     Active Substance: AMLODIPINE BESYLATE\TELMISARTAN
     Dosage: 1 DF, QD
     Route: 048
     Dates: start: 20130710
  4. RESTAS [Concomitant]
     Active Substance: FLUTOPRAZEPAM
     Dosage: 2 MG, QD
     Route: 048
     Dates: start: 20130710
  5. ROHYPNOL [Concomitant]
     Active Substance: FLUNITRAZEPAM
     Dosage: 1 MG, QD
     Route: 048
     Dates: start: 20130710
  6. PANTETHINE [Concomitant]
     Active Substance: PANTETHINE
     Dosage: 100 MG, BID
     Route: 048
     Dates: start: 20160328
  7. SELBEX [Concomitant]
     Active Substance: TEPRENONE
     Dosage: 50 MG, BID
     Route: 048
     Dates: start: 20140818

REACTIONS (1)
  - Osteomyelitis [Recovering/Resolving]

NARRATIVE: CASE EVENT DATE: 201606
